FAERS Safety Report 9149872 (Version 1)
Quarter: 2013Q1

REPORT INFORMATION
  Report Type: Spontaneous
  Country: US (occurrence: None)
  Receive Date: 20130301
  Receipt Date: 20130301
  Transmission Date: 20140127
  Serious: Yes (Other)
  Sender: FDA-Public Use
  Company Number: None

PATIENT
  Age: 49 Year
  Sex: Female
  Weight: 70.31 kg

DRUGS (2)
  1. LUMIGAN [Suspect]
     Dates: start: 20130220, end: 20130221
  2. MYDFRIN [Suspect]

REACTIONS (4)
  - Pruritus [None]
  - Burning sensation [None]
  - Swelling [None]
  - Lacrimation increased [None]
